FAERS Safety Report 7153509-4 (Version None)
Quarter: 2010Q4

REPORT INFORMATION
  Report Type: 
  Country: None (occurrence: None)
  Receive Date: 20101213
  Receipt Date: 20101207
  Transmission Date: 20110411
  Serious: Yes (Other)
  Sender: FDA-Public Use
  Company Number: B0688512A

PATIENT
  Age: 22 Month
  Sex: Male

DRUGS (2)
  1. VENTOLIN [Suspect]
     Route: 048
     Dates: start: 20101206
  2. COLD MEDICINE (UNSPECIFIED) [Suspect]
     Route: 048
     Dates: start: 20101206

REACTIONS (4)
  - ACCIDENTAL EXPOSURE [None]
  - ANAL HAEMORRHAGE [None]
  - FAECES HARD [None]
  - MEDICATION ERROR [None]
